FAERS Safety Report 24223223 (Version 2)
Quarter: 2024Q4

REPORT INFORMATION
  Report Type: Report from Study
  Country: US (occurrence: US)
  Receive Date: 20240819
  Receipt Date: 20241218
  Transmission Date: 20250114
  Serious: Yes (Other)
  Sender: UCB
  Company Number: US-UCBSA-2024040037

PATIENT
  Sex: Female
  Weight: 43.5 kg

DRUGS (1)
  1. FINTEPLA [Suspect]
     Active Substance: FENFLURAMINE
     Indication: Lennox-Gastaut syndrome
     Dosage: 6 MILLILITER, 2X/DAY (BID)
     Dates: start: 20240613, end: 20240717

REACTIONS (2)
  - Partial seizures [Not Recovered/Not Resolved]
  - Headache [Not Recovered/Not Resolved]
